FAERS Safety Report 13022953 (Version 3)
Quarter: 2017Q1

REPORT INFORMATION
  Report Type: Spontaneous
  Country: US (occurrence: US)
  Receive Date: 20161213
  Receipt Date: 20170105
  Transmission Date: 20170428
  Serious: Yes (Hospitalization, Other)
  Sender: FDA-Public Use
  Company Number: US-GLAXOSMITHKLINE-US2016182740

PATIENT
  Age: 73 Year
  Sex: Female

DRUGS (9)
  1. ADVAIR HFA [Suspect]
     Active Substance: FLUTICASONE PROPIONATE\SALMETEROL XINAFOATE
     Indication: BRONCHITIS CHRONIC
     Dosage: 1 PUFF(S), UNK
     Route: 055
  2. BREO ELLIPTA [Suspect]
     Active Substance: FLUTICASONE FUROATE\VILANTEROL TRIFENATATE
     Indication: CHRONIC OBSTRUCTIVE PULMONARY DISEASE
     Dosage: 1 PUFF(S), QD
     Route: 055
     Dates: start: 20161104, end: 20161129
  3. BREO ELLIPTA [Suspect]
     Active Substance: FLUTICASONE FUROATE\VILANTEROL TRIFENATATE
     Indication: BRONCHITIS CHRONIC
  4. OXYGEN. [Concomitant]
     Active Substance: OXYGEN
  5. ADVAIR HFA [Suspect]
     Active Substance: FLUTICASONE PROPIONATE\SALMETEROL XINAFOATE
     Dosage: 115/21MCG UNK, U
  6. LIPITOR [Concomitant]
     Active Substance: ATORVASTATIN CALCIUM
  7. ANORO ELLIPTA [Suspect]
     Active Substance: UMECLIDINIUM BROMIDE\VILANTEROL TRIFENATATE
     Indication: BRONCHITIS CHRONIC
     Dosage: 1 PUFF(S), QD
     Route: 055
     Dates: start: 20161217
  8. ADVAIR HFA [Suspect]
     Active Substance: FLUTICASONE PROPIONATE\SALMETEROL XINAFOATE
     Indication: CHRONIC OBSTRUCTIVE PULMONARY DISEASE
     Dosage: 230/21MCG 1 PUFF(S), QD
     Route: 055
     Dates: start: 2014
  9. ANORO ELLIPTA [Suspect]
     Active Substance: UMECLIDINIUM BROMIDE\VILANTEROL TRIFENATATE
     Indication: CHRONIC OBSTRUCTIVE PULMONARY DISEASE
     Dosage: 1 PUFF(S), QD
     Route: 055
     Dates: start: 20161005

REACTIONS (13)
  - Paraesthesia oral [Unknown]
  - Drug effect increased [Unknown]
  - Product use issue [Unknown]
  - Off label use [Unknown]
  - Swollen tongue [Unknown]
  - Oral pain [Not Recovered/Not Resolved]
  - Tongue blistering [Recovering/Resolving]
  - Dysphonia [Unknown]
  - Lung infection [Recovering/Resolving]
  - Underdose [Unknown]
  - Drug prescribing error [Unknown]
  - Oral mucosal blistering [Recovering/Resolving]
  - Mouth swelling [Unknown]

NARRATIVE: CASE EVENT DATE: 20161104
